FAERS Safety Report 21333328 (Version 1)
Quarter: 2022Q3

REPORT INFORMATION
  Report Type: Spontaneous
  Country: US (occurrence: US)
  Receive Date: 20220914
  Receipt Date: 20220914
  Transmission Date: 20221027
  Serious: No
  Sender: FDA-Public Use
  Company Number: US-PFIZER INC-202201156780

PATIENT
  Age: 78 Year
  Sex: Male
  Weight: 90.72 kg

DRUGS (26)
  1. PAXLOVID [Suspect]
     Active Substance: NIRMATRELVIR\RITONAVIR
     Indication: COVID-19 treatment
     Dosage: 3 DF, 2X/DAY (3 TABLETS IN THE MORNING AND 3 AT NIGHT FOR 5 DAYS)
     Route: 048
     Dates: start: 20220828, end: 20220901
  2. AMLODIPINE [Concomitant]
     Active Substance: AMLODIPINE BESYLATE
     Dosage: 2.5 MG, AS NEEDED (IN THE MORNING AS NEEDED)
  3. ALENDRONATE [Concomitant]
     Active Substance: ALENDRONATE SODIUM
     Dosage: 70 MG, WEEKLY (ONCE A WEEK)
  4. FUROSEMIDE [Concomitant]
     Active Substance: FUROSEMIDE
     Dosage: 20 MG, 1X/DAY (ONCE IN THE MORNING)
  5. DICYCLOMINE [Concomitant]
     Active Substance: DICYCLOMINE HYDROCHLORIDE
     Dosage: 10 MG, AS NEEDED
  6. TRELEGY ELLIPTA [Concomitant]
     Active Substance: FLUTICASONE FUROATE\UMECLIDINIUM BROMIDE\VILANTEROL TRIFENATATE
     Dosage: 200 MCG/62.5 MCG, 1X/DAY
     Route: 055
  7. XOPENEX [Concomitant]
     Active Substance: LEVALBUTEROL HYDROCHLORIDE
     Dosage: 200 MCG/62.5 MCG, 1X/DAY
     Route: 055
  8. ZYRTEC [Concomitant]
     Active Substance: CETIRIZINE HYDROCHLORIDE
     Dosage: 10 MG, AS NEEDED
  9. BENADRYL [Concomitant]
     Active Substance: DIPHENHYDRAMINE HYDROCHLORIDE
     Dosage: 25 MG, AS NEEDED
  10. PANTOPRAZOLE [Concomitant]
     Active Substance: PANTOPRAZOLE
     Dosage: 40 MG, 1X/DAY (ONCE IN THE MORNING BEFORE BREAKFAST)
  11. MYLANTA [Concomitant]
     Active Substance: ALUMINUM HYDROXIDE\DIMETHICONE\MAGNESIUM HYDROXIDE
     Indication: Dyspepsia
     Dosage: UNK, AS NEEDED
  12. SIMETHICONE (DIMETHICONE) [Concomitant]
     Active Substance: DIMETHICONE
     Dosage: 80 MG, AS NEEDED
  13. KETOCONAZOLE [Concomitant]
     Active Substance: KETOCONAZOLE
     Dosage: 2 %, 2X/WEEK (SHAMPOO TWICE A WEEK)
  14. FLONASE [Concomitant]
     Active Substance: FLUTICASONE PROPIONATE
     Dosage: 1 DF, 1X/DAY (ONE SPRAY IN EACH NOSTRIL AT NIGHT)
  15. CHOLECALCIFEROL\RETINOL [Concomitant]
     Active Substance: CHOLECALCIFEROL\RETINOL
     Indication: Vitamin A deficiency eye disorder
     Dosage: 10000 IU, DAILY
  16. CALCIUM WITH VITAMIN D [CALCIUM CARBONATE;COLECALCIFEROL] [Concomitant]
     Dosage: UNK
  17. ADRENAL COMPLEX [Concomitant]
     Dosage: 1 DF, AS NEEDED
  18. DIGESTIVE ENZYMES [AMYLASE;BROMELAINS;LIPASE;PAPAIN;PIPER LONGUM FRUIT [Concomitant]
     Dosage: UNK
  19. B COMPLEX WITH VITAMIN C [ASCORBIC ACID;CALCIUM PANTOTHENATE;NICOTINAM [Concomitant]
     Dosage: UNK
  20. DK2 [Concomitant]
     Dosage: UNK
  21. POTASSIUM [Concomitant]
     Active Substance: POTASSIUM
     Dosage: 99 MG, 1X/DAY
  22. UBIQUINOL [Concomitant]
     Active Substance: UBIQUINOL
     Dosage: 100 MG, 1X/DAY
  23. CYSTINE [Concomitant]
     Active Substance: CYSTINE
     Indication: Eye disorder
     Dosage: UNK, AS NEEDED
  24. LEVOFLOXACIN [Concomitant]
     Active Substance: LEVOFLOXACIN
     Indication: Chronic obstructive pulmonary disease
     Dosage: UNK
  25. PREDNISONE [Concomitant]
     Active Substance: PREDNISONE
     Indication: Chronic obstructive pulmonary disease
     Dosage: UNK
  26. MORNIFLUMATE [Concomitant]
     Active Substance: MORNIFLUMATE
     Dosage: 0.4 MG

REACTIONS (2)
  - COVID-19 [Unknown]
  - Disease recurrence [Unknown]

NARRATIVE: CASE EVENT DATE: 20220908
